FAERS Safety Report 9643244 (Version 1)
Quarter: 2013Q4

REPORT INFORMATION
  Report Type: Spontaneous
  Country: AT (occurrence: AT)
  Receive Date: 20131024
  Receipt Date: 20131024
  Transmission Date: 20140711
  Serious: Yes (Hospitalization, Other)
  Sender: FDA-Public Use
  Company Number: AT-ELI_LILLY_AND_COMPANY-AT201310005177

PATIENT
  Age: 23 Year
  Sex: Male

DRUGS (5)
  1. ZYPREXA [Suspect]
     Indication: SCHIZOAFFECTIVE DISORDER
     Dosage: 10 MG, QD
     Dates: start: 20130206, end: 20130218
  2. TRUXAL [Interacting]
     Indication: SCHIZOAFFECTIVE DISORDER
     Dosage: 50 MG, QD
     Dates: start: 20130206, end: 20130212
  3. RISPERDAL [Interacting]
     Indication: SCHIZOAFFECTIVE DISORDER
     Dosage: 4 MG, QD
     Dates: start: 20130211, end: 20130214
  4. ZELDOX [Concomitant]
     Indication: PRODUCT USED FOR UNKNOWN INDICATION
     Dosage: 80 MG, QD
     Dates: start: 20130216, end: 20130220
  5. CANNABIS [Concomitant]

REACTIONS (9)
  - Dysphagia [Recovered/Resolved]
  - Oculogyric crisis [Recovered/Resolved]
  - Speech disorder [Recovered/Resolved]
  - Facial spasm [Recovered/Resolved]
  - Trismus [Recovered/Resolved]
  - Weight increased [Recovered/Resolved]
  - Extrapyramidal disorder [Recovered/Resolved]
  - Drug interaction [Recovered/Resolved]
  - Drug abuse [Unknown]
